FAERS Safety Report 19055488 (Version 1)
Quarter: 2021Q1

REPORT INFORMATION
  Report Type: Spontaneous
  Country: NL (occurrence: NL)
  Receive Date: 20210324
  Receipt Date: 20210324
  Transmission Date: 20210420
  Serious: Yes (Other)
  Sender: FDA-Public Use
  Company Number: NL-MYLANLABS-2021M1017449

PATIENT
  Age: 52 Year
  Sex: Female
  Weight: 98 kg

DRUGS (5)
  1. MIRENA [Concomitant]
     Active Substance: LEVONORGESTREL
     Dosage: 52 MG (MILLIGRAM), INTRAUTERINE DEVICE, 52 MG (MILLIGRAM)
  2. CETIRIZIN [Concomitant]
     Active Substance: CETIRIZINE HYDROCHLORIDE
     Dosage: TABLET, 10 MG (MILLIGRAM)
  3. FLUTICASONE PROPIONATE. [Concomitant]
     Active Substance: FLUTICASONE PROPIONATE
     Dosage: SPRAY EACH NOSTRIL (DURING SUMMER 2 IN EACH NOSTRIL)
  4. METOPROLOL. [Suspect]
     Active Substance: METOPROLOL
     Indication: ARRHYTHMIA
     Dosage: 1 X 50 MG
     Dates: start: 20201231
  5. TACAL D3 [Concomitant]
     Dosage: 4 X TABLET 500MG/400 I.E.

REACTIONS (3)
  - Dry mouth [Unknown]
  - Oedema peripheral [Not Recovered/Not Resolved]
  - Arrhythmia [Recovering/Resolving]

NARRATIVE: CASE EVENT DATE: 20210103
